FAERS Safety Report 21433749 (Version 1)
Quarter: 2022Q4

REPORT INFORMATION
  Report Type: Report from Study
  Country: US (occurrence: US)
  Receive Date: 20221010
  Receipt Date: 20221010
  Transmission Date: 20230112
  Serious: Yes (Hospitalization)
  Sender: FDA-Public Use
  Company Number: US-SAMOHPHARM-2022004719

PATIENT

DRUGS (7)
  1. CYSTADANE [Suspect]
     Active Substance: BETAINE
     Indication: Homocystinuria
     Dosage: 5 GRAM( SCOOPS), TID
     Route: 048
     Dates: start: 20190121
  2. CYSTADANE [Suspect]
     Active Substance: BETAINE
     Dosage: 6 SCOOPS (6 GRAMS) 3 TIMES A DAY
     Route: 048
     Dates: start: 202107, end: 2022
  3. ZYPREXA [Concomitant]
     Active Substance: OLANZAPINE
     Indication: Product used for unknown indication
     Dosage: 20 MILLIGRAM DAILY
     Dates: start: 2019
  4. MIRALAX [Concomitant]
     Active Substance: POLYETHYLENE GLYCOL 3350
     Indication: Product used for unknown indication
     Dosage: UNK, PRN
  5. METANX [Concomitant]
     Active Substance: LEVOMEFOLATE CALCIUM\METHYLCOBALAMIN\PYRIDOXAL PHOSPHATE ANHYDROUS
     Indication: Vitamin supplementation
     Dosage: UNK
     Dates: start: 2014
  6. KEPPRA [Concomitant]
     Active Substance: LEVETIRACETAM
     Indication: Product used for unknown indication
     Dosage: 500 MILLIGRAM
  7. FOLTABS [FOLIC ACID] [Concomitant]
     Indication: Product used for unknown indication
     Dosage: 800 MILLIGRAM
     Dates: start: 2004

REACTIONS (4)
  - Gastrointestinal tube insertion [Recovered/Resolved]
  - Brain operation [Recovered/Resolved]
  - Off label use [Recovered/Resolved]
  - Off label use [Recovered/Resolved]

NARRATIVE: CASE EVENT DATE: 20190121
